FAERS Safety Report 6667008-7 (Version None)
Quarter: 2010Q2

REPORT INFORMATION
  Report Type: 
  Country: None (occurrence: None)
  Receive Date: 20100402
  Receipt Date: 20100402
  Transmission Date: 20101027
  Serious: Yes (Hospitalization, Other)
  Sender: FDA-Public Use
  Company Number: None

PATIENT
  Age: 38 Year
  Sex: Male
  Weight: 72.5755 kg

DRUGS (2)
  1. ALPRAZOLAM [Suspect]
     Indication: INSOMNIA
     Dosage: .25 MG 2-3X DAILY PO
     Route: 048
     Dates: start: 20090501, end: 20090817
  2. CLONAZEPAM [Suspect]
     Indication: DETOXIFICATION
     Dosage: 1 MG TAPER 1XDAY DONE MAY PO
     Route: 048
     Dates: start: 20090501, end: 20090817

REACTIONS (15)
  - DISORIENTATION [None]
  - DIZZINESS [None]
  - DYSPHAGIA [None]
  - EAR DISCOMFORT [None]
  - FEELING ABNORMAL [None]
  - FORMICATION [None]
  - HYPERHIDROSIS [None]
  - MEMORY IMPAIRMENT [None]
  - MONOPLEGIA [None]
  - MUSCLE TWITCHING [None]
  - PAIN [None]
  - RESTLESSNESS [None]
  - SKIN BURNING SENSATION [None]
  - TREMOR [None]
  - WITHDRAWAL SYNDROME [None]
